FAERS Safety Report 7943495-9 (Version None)
Quarter: 2011Q4

REPORT INFORMATION
  Report Type: 
  Country: None (occurrence: None)
  Receive Date: 20111128
  Receipt Date: 20111114
  Transmission Date: 20120403
  Serious: Yes (Hospitalization, Other)
  Sender: FDA-Public Use
  Company Number: US-AMGEN-USASP2011060068

PATIENT
  Age: 84 Year
  Sex: Female
  Weight: 61.224 kg

DRUGS (5)
  1. PREDNISONE TAB [Concomitant]
     Indication: RENAL DISORDER
     Dosage: 10 MG, UNK
     Route: 048
  2. CLONIDINE [Concomitant]
     Indication: HYPERTENSION
     Dosage: UNK
     Route: 048
     Dates: end: 20111101
  3. PROCRIT [Suspect]
     Indication: RENAL FAILURE
     Dosage: UNK
     Route: 058
     Dates: start: 20100101, end: 20111101
  4. LEVAQUIN [Suspect]
     Indication: PNEUMONIA
     Dosage: UNK
     Route: 048
     Dates: start: 20111001, end: 20111101
  5. INSULIN [Concomitant]
     Indication: DIABETES MELLITUS
     Dosage: UNK
     Route: 058

REACTIONS (10)
  - HAEMOGLOBIN DECREASED [None]
  - LUNG CARCINOMA CELL TYPE UNSPECIFIED STAGE IV [None]
  - FEELING ABNORMAL [None]
  - NERVOUSNESS [None]
  - GAIT DISTURBANCE [None]
  - ANXIETY [None]
  - PNEUMONIA [None]
  - DYSPNOEA [None]
  - PAIN [None]
  - HYPERTENSION [None]
